FAERS Safety Report 5831029-4 (Version None)
Quarter: 2008Q3

REPORT INFORMATION
  Report Type: 
  Country: None (occurrence: None)
  Receive Date: 20080801
  Receipt Date: 20080312
  Transmission Date: 20090109
  Serious: No
  Sender: FDA-Public Use
  Company Number: US-BRISTOL-MYERS SQUIBB COMPANY-14111876

PATIENT
  Age: 79 Year
  Sex: Male

DRUGS (6)
  1. COUMADIN [Suspect]
     Indication: ATRIAL FIBRILLATION
     Dosage: 3 MG SINCE 1992 AND INCREASED TO 4MG
     Dates: start: 19920101
  2. LISINOPRIL [Concomitant]
  3. PLETAL [Concomitant]
  4. DIGITEK [Concomitant]
  5. PREVACID [Concomitant]
  6. FLOMAX [Concomitant]
     Dates: start: 19920101

REACTIONS (1)
  - INTERNATIONAL NORMALISED RATIO DECREASED [None]
